FAERS Safety Report 5812710-X (Version None)
Quarter: 2008Q3

REPORT INFORMATION
  Report Type: 
  Country: None (occurrence: None)
  Receive Date: 20080717
  Receipt Date: 20080707
  Transmission Date: 20090109
  Serious: Yes (Hospitalization)
  Sender: FDA-Public Use
  Company Number: ES-ABBOTT-08P-144-0459899-00

PATIENT
  Sex: Female

DRUGS (6)
  1. SIBUTRAMINE [Suspect]
     Indication: OBESITY
     Route: 048
     Dates: start: 20040304, end: 20080312
  2. FUROSEMIDE [Concomitant]
     Indication: FLUID RETENTION
     Dates: start: 20040304
  3. ACETYLSALICYLIC ACID SRT [Concomitant]
     Indication: DIABETES PROPHYLAXIS
     Dates: start: 20070628
  4. LEVOTHYROXINE SODIUM [Concomitant]
     Indication: HYPOTHYROIDISM
     Route: 048
     Dates: start: 19980101
  5. SIMVASTATIN [Concomitant]
     Indication: DYSLIPIDAEMIA
  6. METFORMIN [Concomitant]
     Indication: TYPE 2 DIABETES MELLITUS

REACTIONS (1)
  - PULMONARY ARTERIAL HYPERTENSION [None]
